FAERS Safety Report 9290944 (Version 3)
Quarter: 2017Q2

REPORT INFORMATION
  Report Type: Spontaneous
  Country: US (occurrence: US)
  Receive Date: 20130515
  Receipt Date: 20170417
  Transmission Date: 20170830
  Serious: Yes (Other)
  Sender: FDA-Public Use
  Company Number: US-BAYER-2013-058348

PATIENT
  Age: 67 Year
  Sex: Female
  Weight: 68.03 kg

DRUGS (2)
  1. ALKA-SELTZER PLUS COLD AND COUGH [Suspect]
     Active Substance: ACETAMINOPHEN\CHLORPHENIRAMINE\DEXTROMETHORPHAN\PHENYLEPHRINE
     Indication: VIRAL UPPER RESPIRATORY TRACT INFECTION
  2. ALKA-SELTZER PLUS COLD AND COUGH [Suspect]
     Active Substance: ACETAMINOPHEN\CHLORPHENIRAMINE\DEXTROMETHORPHAN\PHENYLEPHRINE
     Indication: THROAT IRRITATION
     Dosage: 2 DF, ONCE
     Route: 048
     Dates: start: 20130502, end: 20130502

REACTIONS (8)
  - Urticaria [Recovered/Resolved]
  - Flushing [Recovered/Resolved]
  - Pruritus [Recovered/Resolved]
  - Drug hypersensitivity [None]
  - Loss of personal independence in daily activities [Recovered/Resolved]
  - Nightmare [Not Recovered/Not Resolved]
  - Hypersomnia [None]
  - Headache [Recovered/Resolved]

NARRATIVE: CASE EVENT DATE: 20130502
